FAERS Safety Report 7227172-8 (Version None)
Quarter: 2011Q1

REPORT INFORMATION
  Report Type: 
  Country: None (occurrence: None)
  Receive Date: 20110114
  Receipt Date: 20110110
  Transmission Date: 20110831
  Serious: Yes (Life-Threatening, Hospitalization)
  Sender: FDA-Public Use
  Company Number: ES-CELGENEUS-144-C5013-11010813

PATIENT
  Sex: Male

DRUGS (9)
  1. ENALAPRIL [Concomitant]
     Indication: HYPERTENSION
     Route: 048
  2. DEXAMETHASONE [Suspect]
     Indication: MULTIPLE MYELOMA
     Route: 065
     Dates: start: 20091210
  3. CC-5013 [Suspect]
     Indication: MULTIPLE MYELOMA
     Route: 048
     Dates: start: 20091210
  4. DEXAMETHASONE [Suspect]
     Route: 065
     Dates: start: 20110104, end: 20110110
  5. ASPIRIN [Concomitant]
     Route: 048
  6. ENOXAPARIN SODIUM [Concomitant]
     Indication: THROMBOSIS PROPHYLAXIS
     Route: 058
  7. CC-5013 [Suspect]
     Route: 048
     Dates: start: 20110103, end: 20110110
  8. CLOPIDOGREL [Concomitant]
     Route: 048
  9. CC-5013 [Suspect]
     Route: 048
     Dates: start: 20101116

REACTIONS (1)
  - CARDIOGENIC SHOCK [None]
